FAERS Safety Report 11432663 (Version 4)
Quarter: 2015Q3

REPORT INFORMATION
  Report Type: Report from Study
  Country: IL (occurrence: IL)
  Receive Date: 20150828
  Receipt Date: 20150930
  Transmission Date: 20151125
  Serious: Yes (Hospitalization, Other)
  Sender: FDA-Public Use
  Company Number: IL-ABBVIE-15P-082-1448133-00

PATIENT
  Age: 79 Year
  Sex: Female

DRUGS (3)
  1. SEROQUEL [Suspect]
     Active Substance: QUETIAPINE FUMARATE
     Indication: PRODUCT USED FOR UNKNOWN INDICATION
     Route: 065
     Dates: start: 20150822
  2. DUODOPA [Suspect]
     Active Substance: CARBIDOPA\LEVODOPA
     Route: 050
     Dates: start: 20150823
  3. DUODOPA [Suspect]
     Active Substance: CARBIDOPA\LEVODOPA
     Indication: PARKINSON^S DISEASE
     Route: 050
     Dates: start: 20150817

REACTIONS (27)
  - Stoma site extravasation [Unknown]
  - Hallucination [Unknown]
  - Endoscopic retrograde cholangiopancreatography abnormal [Unknown]
  - Inflammatory marker increased [Unknown]
  - General physical health deterioration [Unknown]
  - Leukocytosis [Unknown]
  - Peritonitis [Unknown]
  - Confusional state [Recovering/Resolving]
  - Gastritis [Unknown]
  - Somnolence [Recovering/Resolving]
  - Vomiting [Unknown]
  - Decreased appetite [Unknown]
  - Asthenia [Unknown]
  - Thrombosis [Unknown]
  - Venous thrombosis [Unknown]
  - Stoma site infection [Unknown]
  - Hallucination [Unknown]
  - Abdominal rigidity [Unknown]
  - Pneumoperitoneum [Unknown]
  - Pyrexia [Recovered/Resolved]
  - Bedridden [Unknown]
  - Acute abdomen [Unknown]
  - Movement disorder [Unknown]
  - Mobility decreased [Unknown]
  - Depressed mood [Unknown]
  - C-reactive protein abnormal [Unknown]
  - Eating disorder [Unknown]

NARRATIVE: CASE EVENT DATE: 20150818
